FAERS Safety Report 6425645-9 (Version None)
Quarter: 2009Q4

REPORT INFORMATION
  Report Type: 
  Country: None (occurrence: None)
  Receive Date: 20091103
  Receipt Date: 20091020
  Transmission Date: 20100525
  Serious: Yes (Hospitalization)
  Sender: FDA-Public Use
  Company Number: SE-MYLANLABS-2009S1018375

PATIENT
  Age: 84 Year
  Sex: Male

DRUGS (9)
  1. SOTALOL [Suspect]
     Indication: CARDIAC DISORDER
     Dates: start: 20081104
  2. WARAN [Suspect]
     Indication: ATRIAL FIBRILLATION
     Dates: start: 19960101
  3. PRAVACHOL [Concomitant]
     Indication: DRUG USE FOR UNKNOWN INDICATION
  4. RAMIPRIL [Concomitant]
     Indication: DRUG USE FOR UNKNOWN INDICATION
  5. NITROLINGUAL [Concomitant]
     Indication: DRUG USE FOR UNKNOWN INDICATION
     Route: 060
  6. DUROFERON [Concomitant]
     Indication: DRUG USE FOR UNKNOWN INDICATION
  7. FURIX [Concomitant]
     Indication: DRUG USE FOR UNKNOWN INDICATION
  8. SPIRONOLAKTON [Concomitant]
     Indication: DRUG USE FOR UNKNOWN INDICATION
  9. LAKTIPEX [Concomitant]
     Indication: DRUG USE FOR UNKNOWN INDICATION
     Route: 048

REACTIONS (2)
  - ATRIOVENTRICULAR BLOCK [None]
  - INTERNATIONAL NORMALISED RATIO INCREASED [None]
